APPROVED DRUG PRODUCT: AMINOPHYLLINE
Active Ingredient: AMINOPHYLLINE
Strength: 200MG
Dosage Form/Route: TABLET;ORAL
Application: A088319 | Product #001
Applicant: VANGARD LABORATORIES INC DIV MIDWAY MEDICAL CO
Approved: Oct 3, 1983 | RLD: No | RS: No | Type: DISCN